FAERS Safety Report 5781864-6 (Version None)
Quarter: 2008Q2

REPORT INFORMATION
  Report Type: 
  Country: None (occurrence: None)
  Receive Date: 20080623
  Receipt Date: 20080616
  Transmission Date: 20081010
  Serious: Yes (Other)
  Sender: FDA-Public Use
  Company Number: B0525995A

PATIENT

DRUGS (1)
  1. NIQUITIN [Suspect]
     Indication: DRUG USE FOR UNKNOWN INDICATION
     Route: 062

REACTIONS (3)
  - INSOMNIA [None]
  - PSORIASIS [None]
  - RASH MACULAR [None]
